FAERS Safety Report 6225418-6 (Version None)
Quarter: 2009Q2

REPORT INFORMATION
  Report Type: 
  Country: None (occurrence: None)
  Receive Date: 20090612
  Receipt Date: 20090416
  Transmission Date: 20091009
  Serious: No
  Sender: FDA-Public Use
  Company Number: US-ABBOTT-09P-163-0568809-00

PATIENT
  Sex: Female
  Weight: 49.032 kg

DRUGS (3)
  1. HUMIRA [Suspect]
     Indication: RHEUMATOID ARTHRITIS
     Dates: start: 19980101, end: 20090402
  2. PREDNISONE [Suspect]
     Indication: DRUG USE FOR UNKNOWN INDICATION
     Dates: start: 20090301, end: 20090301
  3. LEFLUNOMIDE [Concomitant]
     Indication: RHEUMATOID ARTHRITIS
     Dates: start: 20090401

REACTIONS (5)
  - GLOSSODYNIA [None]
  - ORAL MUCOSAL ERYTHEMA [None]
  - ORAL PAIN [None]
  - SYSTEMIC LUPUS ERYTHEMATOSUS [None]
  - TONGUE DISORDER [None]
